FAERS Safety Report 7002673-6 (Version None)
Quarter: 2010Q3

REPORT INFORMATION
  Report Type: 
  Country: None (occurrence: None)
  Receive Date: 20100920
  Receipt Date: 20100910
  Transmission Date: 20110219
  Serious: Yes (Hospitalization, Other)
  Sender: FDA-Public Use
  Company Number: US-ELI_LILLY_AND_COMPANY-US201009003127

PATIENT
  Sex: Female

DRUGS (18)
  1. FORTEO [Suspect]
     Indication: OSTEOPOROSIS
     Dosage: 20 UG, DAILY (1/D)
     Route: 065
     Dates: start: 20100601
  2. PREDNISONE [Concomitant]
     Dosage: 10 MG, UNKNOWN
     Route: 065
  3. PREDNISONE [Concomitant]
     Dosage: 9 MG, UNKNOWN
     Route: 065
  4. PREDNISONE [Concomitant]
     Dosage: 8 MG, UNKNOWN
     Route: 065
  5. PREDNISONE [Concomitant]
     Dosage: 7 MG, UNKNOWN
     Route: 065
  6. PREDNISONE [Concomitant]
     Dosage: 40 MG, UNKNOWN
     Route: 065
  7. PREDNISONE [Concomitant]
     Dosage: 30 MG, UNKNOWN
     Route: 065
     Dates: start: 20100901
  8. PROTONIX [Concomitant]
     Indication: GASTRIC DISORDER
     Dosage: UNK, EACH MORNING
     Route: 065
  9. ASCORBIC ACID [Concomitant]
     Dosage: UNK, UNKNOWN
     Route: 065
  10. FOLIC ACID [Concomitant]
     Dosage: UNK, UNKNOWN
     Route: 065
  11. FISH OIL [Concomitant]
     Dosage: UNK, UNKNOWN
     Route: 065
  12. CALCIUM                                 /N/A/ [Concomitant]
     Dosage: UNK, UNKNOWN
     Route: 065
  13. LEXAPRO [Concomitant]
     Dosage: UNK, UNKNOWN
     Route: 065
  14. XANAX [Concomitant]
     Dosage: UNK, UNKNOWN
     Route: 065
  15. MIRALAX [Concomitant]
     Dosage: UNK, EACH EVENING
     Route: 065
  16. AZOPT [Concomitant]
     Dosage: UNK, UNKNOWN
     Route: 065
  17. XALATAN [Concomitant]
     Dosage: UNK, UNKNOWN
     Route: 065
  18. ALBUTEROL [Concomitant]
     Dosage: UNK, EVERY 4 HRS
     Route: 065
     Dates: start: 20100101

REACTIONS (8)
  - ABNORMAL SENSATION IN EYE [None]
  - BACTERIAL INFECTION [None]
  - COUGH [None]
  - DYSPNOEA [None]
  - FRACTURED SACRUM [None]
  - SPINAL FRACTURE [None]
  - VOMITING [None]
  - WEGENER'S GRANULOMATOSIS [None]
